FAERS Safety Report 6490469-3 (Version None)
Quarter: 2009Q4

REPORT INFORMATION
  Report Type: 
  Country: None (occurrence: None)
  Receive Date: 20091208
  Receipt Date: 20091128
  Transmission Date: 20100525
  Serious: Yes (Death)
  Sender: FDA-Public Use
  Company Number: 1-20852569

PATIENT
  Age: 65 Year
  Sex: Female

DRUGS (4)
  1. PREDNISONE [Suspect]
     Indication: POLYMYOSITIS
     Dosage: 20 MG/DAY (MINIMUM), ORAL
     Route: 048
  2. METHOTREXATE [Suspect]
     Indication: POLYMYOSITIS
  3. AZATHIOPRINE [Suspect]
     Indication: POLYMYOSITIS
     Dosage: ORAL
     Route: 048
  4. CYCLOPHOSPHAMIDE [Suspect]
     Indication: POLYMYOSITIS

REACTIONS (16)
  - ADRENAL MASS [None]
  - APHASIA [None]
  - BONE MARROW FAILURE [None]
  - CENTRAL NERVOUS SYSTEM LYMPHOMA [None]
  - CONFUSIONAL STATE [None]
  - COORDINATION ABNORMAL [None]
  - GAIT DISTURBANCE [None]
  - METASTASES TO ADRENALS [None]
  - METASTASES TO LUNG [None]
  - METASTASES TO SOFT TISSUE [None]
  - METASTASES TO SPINE [None]
  - METASTASES TO THE MEDIASTINUM [None]
  - PANCYTOPENIA [None]
  - PARAESTHESIA [None]
  - PNEUMONIA [None]
  - VERTEBRAL COLUMN MASS [None]
